FAERS Safety Report 11583114 (Version 1)
Quarter: 2015Q4

REPORT INFORMATION
  Report Type: Spontaneous
  Country: US (occurrence: US)
  Receive Date: 20151001
  Receipt Date: 20151001
  Transmission Date: 20160304
  Serious: Yes (Other)
  Sender: FDA-Public Use
  Company Number: US-ROCHE-702755

PATIENT
  Age: 53 Year
  Sex: Female

DRUGS (3)
  1. RIBAVIRIN. [Suspect]
     Active Substance: RIBAVIRIN
     Indication: HEPATITIS C
     Route: 065
  2. PROCRIT [Concomitant]
     Active Substance: ERYTHROPOIETIN
     Route: 065
  3. PEGASYS [Suspect]
     Active Substance: PEGINTERFERON ALFA-2A
     Indication: HEPATITIS C
     Dosage: FORM: PRE FILLED SYRINGE
     Route: 065

REACTIONS (11)
  - Rash [Unknown]
  - Fungal infection [Unknown]
  - Suicide attempt [Unknown]
  - Nasal ulcer [Unknown]
  - Excessive cerumen production [Unknown]
  - Crying [Unknown]
  - Vision blurred [Unknown]
  - Weight decreased [Unknown]
  - Depression [Unknown]
  - Alopecia [Unknown]
  - Oral herpes [Unknown]

NARRATIVE: CASE EVENT DATE: 20090925
